FAERS Safety Report 19123930 (Version 1)
Quarter: 2021Q2

REPORT INFORMATION
  Report Type: Spontaneous
  Country: CH (occurrence: CH)
  Receive Date: 20210413
  Receipt Date: 20210413
  Transmission Date: 20210717
  Serious: Yes (Death, Other)
  Sender: FDA-Public Use
  Company Number: CH-CHEPLA-C20211755

PATIENT
  Age: 73 Year
  Weight: 78 kg

DRUGS (6)
  1. CARBOPLATIN. [Suspect]
     Active Substance: CARBOPLATIN
     Indication: SMALL CELL LUNG CANCER EXTENSIVE STAGE
     Dosage: 505 MG
     Route: 042
     Dates: start: 20210211, end: 20210211
  2. IMFINZI [Suspect]
     Active Substance: DURVALUMAB
     Indication: SMALL CELL LUNG CANCER EXTENSIVE STAGE
     Dosage: 1500 MG
     Route: 042
     Dates: start: 20210211, end: 20210211
  3. ETOPOPHOS [Suspect]
     Active Substance: ETOPOSIDE PHOSPHATE
     Indication: SMALL CELL LUNG CANCER EXTENSIVE STAGE
     Route: 042
     Dates: start: 20210211, end: 20210213
  4. TENORMIN [Suspect]
     Active Substance: ATENOLOL
     Indication: HYPERTENSION
     Route: 048
  5. NOVALGIN (METAMIZOLE SODIUM) [Suspect]
     Active Substance: METAMIZOLE SODIUM
     Dosage: 500 MG (PCA, 4 X 2 TB/D)
     Route: 048
     Dates: start: 20210211
  6. RELVAR ELLIPTA [Suspect]
     Active Substance: FLUTICASONE FUROATE\VILANTEROL TRIFENATATE
     Indication: CHRONIC OBSTRUCTIVE PULMONARY DISEASE
     Dosage: ONCE DAILY
     Route: 055

REACTIONS (4)
  - Pulmonary haemorrhage [Fatal]
  - Disease complication [Fatal]
  - Tumour haemorrhage [Fatal]
  - Thrombocytopenia [Fatal]

NARRATIVE: CASE EVENT DATE: 20210224
